FAERS Safety Report 8485116-5 (Version None)
Quarter: 2012Q3

REPORT INFORMATION
  Report Type: 
  Country: None (occurrence: None)
  Receive Date: 20120703
  Receipt Date: 20120626
  Transmission Date: 20120928
  Serious: Yes (Hospitalization)
  Sender: FDA-Public Use
  Company Number: FR-PFIZER INC-2012153095

PATIENT
  Age: 84 Year
  Sex: Female
  Weight: 57 kg

DRUGS (1)
  1. TORISEL [Suspect]
     Dosage: UNK
     Dates: start: 20090724, end: 20091013

REACTIONS (1)
  - CARDIAC FAILURE [None]
